FAERS Safety Report 25340378 (Version 1)
Quarter: 2025Q2

REPORT INFORMATION
  Report Type: Spontaneous
  Country: US (occurrence: US)
  Receive Date: 20250521
  Receipt Date: 20250521
  Transmission Date: 20250717
  Serious: Yes (Other)
  Sender: UCB
  Company Number: US-UCBSA-2025029186

PATIENT
  Sex: Female

DRUGS (1)
  1. BIMZELX [Suspect]
     Active Substance: BIMEKIZUMAB-BKZX
     Indication: Hidradenitis
     Dosage: UNK
     Route: 058
     Dates: start: 202504

REACTIONS (3)
  - Blindness transient [Unknown]
  - Animal scratch [Unknown]
  - Eye infection [Unknown]

NARRATIVE: CASE EVENT DATE: 20250101
